FAERS Safety Report 9393888 (Version 1)
Quarter: 2013Q3

REPORT INFORMATION
  Report Type: Spontaneous
  Country: TR (occurrence: None)
  Receive Date: 20130705
  Receipt Date: 20130705
  Transmission Date: 20140515
  Serious: Yes (Hospitalization, Other)
  Sender: FDA-Public Use
  Company Number: TR-1199147

PATIENT
  Age: 72 Year
  Sex: Male

DRUGS (1)
  1. ALCAINE [Suspect]
     Indication: EYE PAIN
     Route: 047

REACTIONS (7)
  - Eye excision [None]
  - Corneal perforation [None]
  - Ulcerative keratitis [None]
  - Keratopathy [None]
  - Corneal epithelium defect [None]
  - Drug abuse [None]
  - Eye pain [None]
